FAERS Safety Report 8308836-1 (Version None)
Quarter: 2012Q2

REPORT INFORMATION
  Report Type: 
  Country: None (occurrence: None)
  Receive Date: 20120424
  Receipt Date: 20120413
  Transmission Date: 20120825
  Serious: Yes (Hospitalization)
  Sender: FDA-Public Use
  Company Number: US-ACTELION-A-US2011-49573

PATIENT

DRUGS (5)
  1. CIALIS [Concomitant]
  2. COUMADIN [Concomitant]
  3. TRACLEER [Suspect]
     Indication: PULMONARY ARTERIAL HYPERTENSION
     Dosage: UNK
     Route: 048
     Dates: start: 20081110
  4. CALCIUM CHANNEL BLOCKERS [Concomitant]
  5. VIAGRA [Concomitant]

REACTIONS (8)
  - FEELING COLD [None]
  - FLUSHING [None]
  - VISION BLURRED [None]
  - HEADACHE [None]
  - HYPOTENSION [None]
  - MALAISE [None]
  - DIARRHOEA [None]
  - HALLUCINATION [None]
